FAERS Safety Report 10164564 (Version 1)
Quarter: 2014Q2

REPORT INFORMATION
  Report Type: Spontaneous
  Country: US (occurrence: US)
  Receive Date: 20140510
  Receipt Date: 20140510
  Transmission Date: 20141212
  Serious: No
  Sender: FDA-Public Use
  Company Number: US-BRISTOL-MYERS SQUIBB COMPANY-19548361

PATIENT
  Age: 78 Year
  Sex: Male

DRUGS (6)
  1. BYDUREON [Suspect]
     Dates: start: 2012
  2. TRAZODONE HCL [Concomitant]
  3. VERAPAMIL [Concomitant]
  4. METFORMIN [Concomitant]
  5. QUINAPRIL [Concomitant]
  6. GEMFIBROZIL [Concomitant]

REACTIONS (2)
  - Injection site nodule [Not Recovered/Not Resolved]
  - Injection site pruritus [Unknown]
